FAERS Safety Report 6060786-X (Version None)
Quarter: 2009Q1

REPORT INFORMATION
  Report Type: 
  Country: None (occurrence: None)
  Receive Date: 20090202
  Receipt Date: 20090126
  Transmission Date: 20090719
  Serious: Yes (Hospitalization, Other)
  Sender: FDA-Public Use
  Company Number: PHHY2008GB06769

PATIENT
  Sex: Female

DRUGS (9)
  1. TEGRETOL [Suspect]
     Indication: ALCOHOLIC SEIZURE
     Dosage: 200 MG, BID
     Route: 048
  2. TEGRETOL [Suspect]
     Dosage: 6400 MG, UNK
  3. TEGRETOL [Suspect]
     Dosage: 200 MG, BID
     Route: 048
     Dates: start: 20080424
  4. SIMVASTATIN [Concomitant]
     Dosage: 40 MG DAILY
     Route: 048
  5. THIAMINE HCL [Concomitant]
     Indication: ALCOHOLISM
     Dosage: 300 MG DAILY
     Route: 048
  6. OMEPRAZOLE [Concomitant]
     Indication: GASTROOESOPHAGEAL REFLUX DISEASE
     Dosage: 40 MG DAILY
     Route: 048
  7. ASPIRIN [Concomitant]
     Dosage: 75 MG DAILY
     Route: 048
  8. CITALOPRAM [Concomitant]
     Indication: DEPRESSION
     Dosage: 20 MG DAILY
     Route: 048
  9. VITAMIN B COMPLEX CAP [Concomitant]
     Indication: ALCOHOLISM
     Dosage: 6 TABLETS PER DAY
     Route: 048

REACTIONS (9)
  - ANTICONVULSANT DRUG LEVEL ABOVE THERAPEUTIC [None]
  - ATAXIA [None]
  - COORDINATION ABNORMAL [None]
  - DEPRESSION [None]
  - DYSARTHRIA [None]
  - NYSTAGMUS [None]
  - OVERDOSE [None]
  - SUICIDAL IDEATION [None]
  - VOMITING [None]
